FAERS Safety Report 25989674 (Version 2)
Quarter: 2025Q4

REPORT INFORMATION
  Report Type: Report from Study
  Country: CA (occurrence: CA)
  Receive Date: 20251103
  Receipt Date: 20251223
  Transmission Date: 20260117
  Serious: No
  Sender: ABBVIE
  Company Number: CA-ABBVIE-6523212

PATIENT
  Age: 60 Year
  Sex: Female

DRUGS (2)
  1. RINVOQ [Suspect]
     Active Substance: UPADACITINIB
     Indication: Psoriatic arthropathy
     Route: 048
     Dates: end: 20251014
  2. RINVOQ [Suspect]
     Active Substance: UPADACITINIB
     Indication: Psoriatic arthropathy
     Route: 048
     Dates: start: 20251114

REACTIONS (3)
  - Vision blurred [Not Recovered/Not Resolved]
  - Vitreous floaters [Not Recovered/Not Resolved]
  - Eye haemorrhage [Unknown]

NARRATIVE: CASE EVENT DATE: 20250101
